FAERS Safety Report 19926110 (Version 2)
Quarter: 2021Q4

REPORT INFORMATION
  Report Type: Spontaneous
  Country: PT (occurrence: PT)
  Receive Date: 20211006
  Receipt Date: 20211118
  Transmission Date: 20220303
  Serious: Yes (Other)
  Sender: FDA-Public Use
  Company Number: PT-009507513-2110PRT000565

PATIENT
  Age: 56 Year
  Sex: Female

DRUGS (4)
  1. ERTAPENEM SODIUM [Suspect]
     Active Substance: ERTAPENEM SODIUM
     Indication: Pyelonephritis acute
  2. MEROPENEM [Suspect]
     Active Substance: MEROPENEM
     Indication: Pyelonephritis acute
  3. AMIKACIN [Suspect]
     Active Substance: AMIKACIN
     Indication: Pyelonephritis acute
  4. COLISTIN [Suspect]
     Active Substance: COLISTIN
     Indication: Pyelonephritis acute

REACTIONS (2)
  - Renal graft infection [Recovered/Resolved]
  - Off label use [Unknown]
